FAERS Safety Report 23637989 (Version 2)
Quarter: 2024Q2

REPORT INFORMATION
  Report Type: Spontaneous
  Country: FR (occurrence: FR)
  Receive Date: 20240315
  Receipt Date: 20240402
  Transmission Date: 20240716
  Serious: Yes (Other)
  Sender: FDA-Public Use
  Company Number: FR-Karo Pharma-2154430

PATIENT
  Age: 68 Year
  Sex: Male

DRUGS (4)
  1. LAMISIL [Suspect]
     Active Substance: TERBINAFINE HYDROCHLORIDE
     Indication: Rash papular
  2. KETOCONAZOLE [Suspect]
     Active Substance: KETOCONAZOLE
  3. BETADINE [Suspect]
     Active Substance: POVIDONE-IODINE
  4. CLOBETASOL PROPIONATE [Suspect]
     Active Substance: CLOBETASOL PROPIONATE

REACTIONS (1)
  - Chemical burn [Recovered/Resolved with Sequelae]

NARRATIVE: CASE EVENT DATE: 20220801
